FAERS Safety Report 14681697 (Version 3)
Quarter: 2018Q2

REPORT INFORMATION
  Report Type: Spontaneous
  Country: US (occurrence: US)
  Receive Date: 20180326
  Receipt Date: 20180425
  Transmission Date: 20180711
  Serious: No
  Sender: FDA-Public Use
  Company Number: US-009507513-1803USA010027

PATIENT
  Age: 16 Year
  Sex: Female
  Weight: 61.22 kg

DRUGS (3)
  1. NEXPLANON [Suspect]
     Active Substance: ETONOGESTREL
     Indication: CONTRACEPTION
     Dosage: 3 YEAR IMPLANT, INSERTED IN THE LEFT ARM
     Route: 059
     Dates: start: 20170811, end: 20180412
  2. EFFEXOR [Concomitant]
     Active Substance: VENLAFAXINE HYDROCHLORIDE
  3. NEXPLANON [Suspect]
     Active Substance: ETONOGESTREL
     Indication: MUSCLE SPASMS

REACTIONS (5)
  - Device kink [Recovered/Resolved]
  - No adverse event [Unknown]
  - Medical device discomfort [Recovered/Resolved]
  - Device breakage [Recovered/Resolved]
  - Product use in unapproved indication [Unknown]

NARRATIVE: CASE EVENT DATE: 20170811
